FAERS Safety Report 17217241 (Version 1)
Quarter: 2019Q4

REPORT INFORMATION
  Report Type: Spontaneous
  Country: RU (occurrence: RU)
  Receive Date: 20191231
  Receipt Date: 20191231
  Transmission Date: 20200122
  Serious: Yes (Other)
  Sender: FDA-Public Use
  Company Number: RU-SUN PHARMACEUTICAL INDUSTRIES LTD-2019R1-231967

PATIENT
  Age: 33 Year
  Sex: Female
  Weight: 80 kg

DRUGS (1)
  1. DELSIA [Suspect]
     Active Substance: DROSPIRENONE\ETHINYL ESTRADIOL
     Indication: CONTRACEPTION
     Dosage: 1 DOSAGE FORM, DAILY
     Route: 048

REACTIONS (7)
  - Low density lipoprotein increased [Unknown]
  - Pain [Recovering/Resolving]
  - Oedema peripheral [Recovering/Resolving]
  - Deep vein thrombosis [Unknown]
  - Blood cholesterol increased [Unknown]
  - Blood fibrinogen increased [Unknown]
  - High density lipoprotein increased [Unknown]
